FAERS Safety Report 15438763 (Version 1)
Quarter: 2018Q3

REPORT INFORMATION
  Report Type: Spontaneous
  Country: ES (occurrence: ES)
  Receive Date: 20180928
  Receipt Date: 20180928
  Transmission Date: 20181010
  Serious: Yes (Hospitalization)
  Sender: FDA-Public Use
  Company Number: ES-TEVA-2018-ES-959412

PATIENT
  Age: 52 Year
  Sex: Male

DRUGS (1)
  1. CIPROFLOXACINO (2049A) [Suspect]
     Active Substance: CIPROFLOXACIN
     Indication: ORCHITIS
     Dosage: 1000 MILLIGRAM DAILY;
     Route: 048
     Dates: start: 20180730, end: 20180806

REACTIONS (3)
  - Incorrect drug administration duration [Recovered/Resolved]
  - Orchitis [Recovered/Resolved]
  - Drug ineffective [Recovered/Resolved]

NARRATIVE: CASE EVENT DATE: 20180730
